FAERS Safety Report 25730225 (Version 1)
Quarter: 2025Q3

REPORT INFORMATION
  Report Type: Spontaneous
  Country: US (occurrence: None)
  Receive Date: 20250826
  Receipt Date: 20250826
  Transmission Date: 20251020
  Serious: Yes (Hospitalization)
  Sender: FDA-CTU
  Company Number: None

PATIENT
  Age: 42 Year
  Sex: Female

DRUGS (1)
  1. BIKTARVY [Suspect]
     Active Substance: BICTEGRAVIR SODIUM\EMTRICITABINE\TENOFOVIR ALAFENAMIDE FUMARATE
     Indication: HIV infection
     Dosage: 1  TABLET BY MOUTH DILY ORAL
     Route: 048
     Dates: start: 20231205

REACTIONS (3)
  - Therapy interrupted [None]
  - Hypophagia [None]
  - Gallbladder disorder [None]

NARRATIVE: CASE EVENT DATE: 20250701
